FAERS Safety Report 11771467 (Version 1)
Quarter: 2015Q4

REPORT INFORMATION
  Report Type: Spontaneous
  Country: US (occurrence: US)
  Receive Date: 20151124
  Receipt Date: 20151124
  Transmission Date: 20160304
  Serious: No
  Sender: FDA-Public Use
  Company Number: US-ACCORD-033933

PATIENT
  Age: 90 Year
  Sex: Female

DRUGS (1)
  1. LISINOPRIL ACCORD [Suspect]
     Active Substance: LISINOPRIL
     Indication: BLOOD PRESSURE MEASUREMENT
     Dosage: STRENGTH: 10 MG
     Route: 048

REACTIONS (2)
  - Headache [Not Recovered/Not Resolved]
  - Product substitution issue [Unknown]
